FAERS Safety Report 5965852-2 (Version None)
Quarter: 2008Q4

REPORT INFORMATION
  Report Type: 
  Country: None (occurrence: None)
  Receive Date: 20081125
  Receipt Date: 20081119
  Transmission Date: 20090506
  Serious: Yes (Hospitalization)
  Sender: FDA-Public Use
  Company Number: DE-BIOGENIDEC-2008BI031456

PATIENT
  Age: 46 Year
  Sex: Female
  Weight: 50 kg

DRUGS (3)
  1. TYSABRI [Suspect]
     Indication: MULTIPLE SCLEROSIS
     Route: 042
     Dates: start: 20071029, end: 20080922
  2. VOLTAREN [Concomitant]
     Route: 048
     Dates: start: 20081001
  3. PANTOZOL [Concomitant]
     Route: 048
     Dates: start: 20081001

REACTIONS (1)
  - GOITRE [None]
